FAERS Safety Report 5991202-1 (Version None)
Quarter: 2008Q4

REPORT INFORMATION
  Report Type: 
  Country: None (occurrence: None)
  Receive Date: 20081202
  Receipt Date: 20080415
  Transmission Date: 20090506
  Serious: Yes (Disabling)
  Sender: FDA-Public Use
  Company Number: WAES 0705USA01335

PATIENT
  Age: 44 Year
  Sex: Female
  Weight: 74.3899 kg

DRUGS (2)
  1. FOSAMAX [Suspect]
     Indication: OSTEOPENIA
     Dosage: 5 MG/PO
     Route: 048
     Dates: start: 20000201
  2. PREMARIN [Concomitant]

REACTIONS (19)
  - ADVERSE EVENT [None]
  - ALOPECIA [None]
  - ANXIETY [None]
  - ARTHRITIS [None]
  - CARDIAC MURMUR [None]
  - CELLULITIS [None]
  - DENTAL CARIES [None]
  - FATIGUE [None]
  - HOT FLUSH [None]
  - LOOSE TOOTH [None]
  - PAIN IN JAW [None]
  - RASH [None]
  - RESORPTION BONE INCREASED [None]
  - SWELLING [None]
  - TOOTH DISORDER [None]
  - TOOTH FRACTURE [None]
  - TOOTH INJURY [None]
  - TOOTH LOSS [None]
  - VULVOVAGINAL DRYNESS [None]
